FAERS Safety Report 18628231 (Version 1)
Quarter: 2020Q4

REPORT INFORMATION
  Report Type: Spontaneous
  Country: NL (occurrence: NL)
  Receive Date: 20201217
  Receipt Date: 20201217
  Transmission Date: 20210114
  Serious: Yes (Other)
  Sender: FDA-Public Use
  Company Number: NL-TEVA-2020-NL-1852664

PATIENT
  Age: 51 Year
  Sex: Female
  Weight: 76 kg

DRUGS (4)
  1. IBUPROFEN CAPSULE ZACHT 400MG / BRAND NAME NOT SPECIFIED [Suspect]
     Active Substance: IBUPROFEN
     Indication: PAIN
     Dosage: 600 MG EVERY 6 HOURS A FEW DAYS IN CONNECTION WITH PULLING WISDOM TOOTH LOWER JAW (PRESCRIPTION DENT
     Dates: start: 20200917
  2. COLECALCIFEROL / BRAND NAME NOT SPECIFIED [Concomitant]
     Dosage: 10 PICOGRAM DAILY; 1 X D 1 TABLET 10PG (CANNOT FIND MARK), THERAPY START DATE ASKU, THERAPY END DATE
  3. VALACYCLOVIR [Suspect]
     Active Substance: VALACYCLOVIR HYDROCHLORIDE
     Indication: PROPHYLAXIS
     Dosage: 500 MILLIGRAM DAILY; MAINTENANCE DOSE 1X PER DAY
     Dates: start: 20200917, end: 20201012
  4. LEVONORGESTREL TABLET 1,5MG / BRAND NAME NOT SPECIFIED [Concomitant]
     Dosage: 1,5 MG, THERAPY START DATE ASKU, THERAPY END DATE ASKU

REACTIONS (2)
  - Somnolence [Recovered/Resolved]
  - Loss of consciousness [Recovered/Resolved]

NARRATIVE: CASE EVENT DATE: 20200930
